FAERS Safety Report 5277679-8 (Version None)
Quarter: 2007Q1

REPORT INFORMATION
  Report Type: 
  Country: None (occurrence: None)
  Receive Date: 20061213
  Receipt Date: 20040629
  Transmission Date: 20070707
  Serious: No
  Sender: FDA-Public Use
  Company Number: 2004UW13518

PATIENT
  Age: 63 Year
  Sex: Female
  Weight: 72.5755 kg

DRUGS (12)
  1. SEROQUEL [Suspect]
     Indication: BIPOLAR DISORDER
     Dosage: 25 MG QD PO
     Route: 048
     Dates: start: 20040212
  2. SEROQUEL [Suspect]
     Indication: SLEEP DISORDER
     Dosage: 25 MG QD PO
     Route: 048
     Dates: start: 20040212
  3. SEROQUEL [Suspect]
     Indication: BIPOLAR DISORDER
     Dosage: 50 MG QD PO
     Route: 048
  4. SEROQUEL [Suspect]
     Indication: SLEEP DISORDER
     Dosage: 50 MG QD PO
     Route: 048
  5. SEROQUEL [Suspect]
     Indication: BIPOLAR DISORDER
     Dosage: 75 MG QD PO
     Route: 048
  6. SEROQUEL [Suspect]
     Indication: SLEEP DISORDER
     Dosage: 75 MG QD PO
     Route: 048
  7. SEROQUEL [Suspect]
     Indication: BIPOLAR DISORDER
     Dosage: 100 MG QD PO
     Route: 048
     Dates: end: 20040529
  8. SEROQUEL [Suspect]
     Indication: SLEEP DISORDER
     Dosage: 100 MG QD PO
     Route: 048
     Dates: end: 20040529
  9. EFFEXOR [Concomitant]
  10. PAXIL [Concomitant]
  11. LITHIUM CARBONATE [Concomitant]
  12. THORAZOPAM [Concomitant]

REACTIONS (5)
  - CATARACT [None]
  - DYSKINESIA [None]
  - GLOSSODYNIA [None]
  - PHARYNGOLARYNGEAL PAIN [None]
  - THIRST [None]
